FAERS Safety Report 8995342 (Version 2)
Quarter: 2013Q1

REPORT INFORMATION
  Report Type: Spontaneous
  Country: IE (occurrence: IE)
  Receive Date: 20130102
  Receipt Date: 20130318
  Transmission Date: 20140127
  Serious: Yes (Life-Threatening, Hospitalization)
  Sender: FDA-Public Use
  Company Number: IE-ASTRAZENECA-2012SE96445

PATIENT
  Age: 6 Month
  Sex: Female

DRUGS (3)
  1. SYNAGIS [Suspect]
     Indication: HEART DISEASE CONGENITAL
     Route: 030
     Dates: start: 20121024
  2. FUROSEMIDE [Concomitant]
     Dosage: TWO IN 1 DAY
  3. SPIRONOLACTONE [Concomitant]
     Dosage: TWO IN ONE DAY

REACTIONS (2)
  - Pneumococcal sepsis [Recovered/Resolved]
  - Respiratory syncytial virus bronchiolitis [Recovered/Resolved]
